FAERS Safety Report 6193962-6 (Version None)
Quarter: 2009Q2

REPORT INFORMATION
  Report Type: 
  Country: None (occurrence: None)
  Receive Date: 20090518
  Receipt Date: 20090508
  Transmission Date: 20091009
  Serious: Yes (Other)
  Sender: FDA-Public Use
  Company Number: PHHY2009JP15357

PATIENT
  Age: 71 Year
  Sex: Male

DRUGS (2)
  1. ZOMETA [Suspect]
     Indication: MULTIPLE MYELOMA
     Dosage: 4 MG/MONTH
     Route: 042
  2. DISODIUM INCADRONATE [Suspect]
     Indication: MULTIPLE MYELOMA
     Dosage: 10 MG/MONTH
     Route: 042

REACTIONS (7)
  - BONE DISORDER [None]
  - DENTAL CLEANING [None]
  - FISTULA [None]
  - OSTEONECROSIS [None]
  - PURULENT DISCHARGE [None]
  - SEQUESTRECTOMY [None]
  - TOOTHACHE [None]
